FAERS Safety Report 25256682 (Version 1)
Quarter: 2025Q2

REPORT INFORMATION
  Report Type: Spontaneous
  Country: US (occurrence: None)
  Receive Date: 20250428
  Receipt Date: 20250428
  Transmission Date: 20250716
  Serious: No
  Sender: FDA-CTU
  Company Number: None

PATIENT
  Age: 77 Year
  Sex: Male
  Weight: 107.1 kg

DRUGS (2)
  1. ABIRATERONE ACETATE [Suspect]
     Active Substance: ABIRATERONE ACETATE
     Indication: Prostate cancer
     Dosage: 1000 MGMDAILY ORAL ?
     Route: 048
     Dates: start: 20240702
  2. PREDNISONE [Suspect]
     Active Substance: PREDNISONE
     Indication: Prostate cancer
     Dosage: 5 MG DAILY ORAL
     Route: 048
     Dates: start: 20240702

REACTIONS (5)
  - Lacrimation increased [None]
  - Eye pain [None]
  - Visual impairment [None]
  - Weight increased [None]
  - Diabetes mellitus [None]

NARRATIVE: CASE EVENT DATE: 20250407
